FAERS Safety Report 4414715-2 (Version None)
Quarter: 2004Q3

REPORT INFORMATION
  Report Type: 
  Country: None (occurrence: None)
  Receive Date: 20040804
  Receipt Date: 20030715
  Transmission Date: 20050211
  Serious: No
  Sender: FDA-Public Use
  Company Number: US-BRISTOL-MYERS SQUIBB COMPANY-12327730

PATIENT
  Age: 77 Year
  Sex: Male
  Weight: 104 kg

DRUGS (1)
  1. GLUCOVANCE [Suspect]
     Indication: DIABETES MELLITUS
     Dosage: DOSAGE FORM = TABLET = 2.5MG/500MG PER TABLET
     Route: 048
     Dates: start: 20030101

REACTIONS (1)
  - DIARRHOEA [None]
